FAERS Safety Report 19710182 (Version 1)
Quarter: 2021Q3

REPORT INFORMATION
  Report Type: Spontaneous
  Country: US (occurrence: US)
  Receive Date: 20210816
  Receipt Date: 20210816
  Transmission Date: 20211014
  Serious: Yes (Life-Threatening, Other)
  Sender: FDA-Public Use
  Company Number: US-BRACCO-2021US02823

PATIENT
  Age: 77 Year
  Sex: Male

DRUGS (6)
  1. NICARDIPINE [Concomitant]
     Active Substance: NICARDIPINE
  2. HEPARIN [Concomitant]
     Active Substance: HEPARIN SODIUM
  3. NITROGLYCERIN. [Concomitant]
     Active Substance: NITROGLYCERIN
  4. FENTANYL. [Concomitant]
     Active Substance: FENTANYL
  5. ISOVUE 370 [Suspect]
     Active Substance: IOPAMIDOL
     Indication: PERCUTANEOUS CORONARY INTERVENTION
     Dosage: UNK UNK, SINGLE
     Dates: start: 20210601, end: 20210601
  6. VERSED [Concomitant]
     Active Substance: MIDAZOLAM HYDROCHLORIDE

REACTIONS (1)
  - Torsade de pointes [Recovered/Resolved]

NARRATIVE: CASE EVENT DATE: 20210601
